FAERS Safety Report 21223312 (Version 2)
Quarter: 2024Q2

REPORT INFORMATION
  Report Type: Other
  Country: ES (occurrence: None)
  Receive Date: 20220817
  Receipt Date: 20240422
  Transmission Date: 20240717
  Serious: Yes (Death)
  Sender: FDA-Public Use
  Company Number: ES-ROCHE-3160436

PATIENT
  Age: 82 Year
  Sex: Female

DRUGS (3)
  1. RITUXIMAB [Suspect]
     Active Substance: RITUXIMAB
     Indication: Lymphoma
     Dosage: FOR 4 DOSES IN CYCLE 1 (+/- CYCLE 2)?FOR 4 DOSES (DAYS 1, 8, 15, AND 22 OF CYCLE 1) WITH UP TO AN AD
     Route: 042
  2. PARSACLISIB [Suspect]
     Active Substance: PARSACLISIB
     Indication: Lymphoma
     Route: 048
  3. PARSACLISIB [Suspect]
     Active Substance: PARSACLISIB
     Route: 048

REACTIONS (2)
  - COVID-19 pneumonia [Fatal]
  - COVID-19 [Fatal]
